FAERS Safety Report 7219332-7 (Version None)
Quarter: 2011Q1

REPORT INFORMATION
  Report Type: 
  Country: None (occurrence: None)
  Receive Date: 20110111
  Receipt Date: 20110104
  Transmission Date: 20110831
  Serious: No
  Sender: FDA-Public Use
  Company Number: US-PFIZER INC-2011003803

PATIENT
  Age: 77 Year
  Sex: Female

DRUGS (10)
  1. POTASSIUM [Concomitant]
  2. CALCIUM CARBONATE [Concomitant]
  3. ASCORBIC ACID [Concomitant]
  4. MAGNESIUM [Concomitant]
  5. LOVAZA [Concomitant]
  6. NEXIUM [Concomitant]
  7. ADVIL PM [Suspect]
     Indication: PAIN
     Dosage: TWO CAPLETS AS NEEDED
     Route: 048
     Dates: start: 20101220, end: 20110101
  8. ADVIL PM [Suspect]
     Indication: INSOMNIA
  9. METHOTREXATE [Concomitant]
  10. ACETYLSALICYLIC ACID [Concomitant]

REACTIONS (1)
  - RESTLESSNESS [None]
